FAERS Safety Report 9447910 (Version 2)
Quarter: 2013Q3

REPORT INFORMATION
  Report Type: Report from Study
  Country: BR (occurrence: BR)
  Receive Date: 20130808
  Receipt Date: 20130816
  Transmission Date: 20140515
  Serious: Yes (Hospitalization, Other)
  Sender: FDA-Public Use
  Company Number: PHHY2013BR083886

PATIENT
  Age: 41 Year
  Sex: Male
  Weight: 41.5 kg

DRUGS (9)
  1. CICLOSPORIN [Suspect]
     Indication: IMMUNOSUPPRESSION
     Dosage: 350 MG, PER DAY
     Route: 048
     Dates: start: 19980626, end: 20010404
  2. CICLOSPORIN [Suspect]
     Indication: RENAL TRANSPLANT
  3. EVEROLIMUS [Suspect]
     Indication: RENAL TRANSPLANT
     Dosage: 1 MG, PER DAY
     Route: 048
     Dates: start: 20080629, end: 20100224
  4. EVEROLIMUS [Suspect]
     Dosage: 2 MG, PER DAY
     Route: 048
     Dates: start: 20100225
  5. TACROLIMUS [Suspect]
     Indication: IMMUNOSUPPRESSION
     Dosage: UNK UKN, UNK
  6. AZATHIOPRINE [Suspect]
     Indication: IMMUNOSUPPRESSION
     Dosage: 100 MG, PER DAY
     Dates: start: 19980626, end: 20080109
  7. AZATHIOPRINE [Suspect]
     Indication: RENAL TRANSPLANT
  8. PREDNISONE [Suspect]
     Indication: IMMUNOSUPPRESSION
     Dosage: 10 MG, PER DAY
     Dates: start: 19980626
  9. PREDNISONE [Suspect]
     Indication: RENAL TRANSPLANT

REACTIONS (19)
  - Pneumonia [Recovered/Resolved]
  - Lung disorder [Unknown]
  - Abdominal mass [Unknown]
  - Gastric disorder [Unknown]
  - Lower extremity mass [Unknown]
  - Skin lesion [Recovered/Resolved]
  - Cytomegalovirus infection [Unknown]
  - Epstein-Barr virus infection [Unknown]
  - Helicobacter infection [Unknown]
  - Gastric ulcer [Unknown]
  - Non-Hodgkin^s lymphoma [Unknown]
  - Weight decreased [Unknown]
  - Pyrexia [Unknown]
  - Cachexia [Unknown]
  - Night sweats [Unknown]
  - Pallor [Unknown]
  - Abdominal pain upper [Unknown]
  - Lymphadenopathy [Unknown]
  - Splenomegaly [Unknown]
